FAERS Safety Report 23615023 (Version 1)
Quarter: 2024Q1

REPORT INFORMATION
  Report Type: Report from Study
  Country: BR (occurrence: BR)
  Receive Date: 20240311
  Receipt Date: 20240311
  Transmission Date: 20240410
  Serious: Yes (Hospitalization, Other)
  Sender: FDA-Public Use
  Company Number: BR-JNJFOC-20240212558

PATIENT
  Age: 5 Decade
  Sex: Male

DRUGS (2)
  1. REMICADE [Suspect]
     Active Substance: INFLIXIMAB
     Indication: Crohn^s disease
     Route: 041
     Dates: start: 201203
  2. REMICADE [Suspect]
     Active Substance: INFLIXIMAB
     Dosage: 4 VIALS
     Route: 041
     Dates: start: 20210912

REACTIONS (6)
  - Gastrointestinal infection [Unknown]
  - Anaemia [Not Recovered/Not Resolved]
  - Haematochezia [Recovered/Resolved]
  - Intestinal resection [Unknown]
  - Intestinal obstruction [Recovered/Resolved]
  - Therapeutic response decreased [Unknown]

NARRATIVE: CASE EVENT DATE: 20120101
